FAERS Safety Report 5926312-8 (Version None)
Quarter: 2008Q4

REPORT INFORMATION
  Report Type: 
  Country: None (occurrence: None)
  Receive Date: 20081022
  Receipt Date: 20081014
  Transmission Date: 20090506
  Serious: Yes (Other)
  Sender: FDA-Public Use
  Company Number: US-ASTRAZENECA-2008UW15650

PATIENT
  Age: 62 Year
  Sex: Female
  Weight: 73.9 kg

DRUGS (9)
  1. FASLODEX [Suspect]
     Indication: BREAST CANCER METASTATIC
     Dosage: 250 MG
     Route: 030
     Dates: start: 20080411
  2. TAMOXIFEN CITRATE [Concomitant]
     Indication: BREAST CANCER METASTATIC
     Route: 048
  3. MICARDIS [Concomitant]
     Indication: HYPERTENSION
  4. HYDROCHLOROTHIAZIDE [Concomitant]
     Indication: HYPERTENSION
  5. POTASSIUM CHLORIDE [Concomitant]
     Route: 048
  6. OXYCODONE HCL [Concomitant]
     Indication: PAIN
     Dosage: 5 -10 MG Q 4-6H PRN
     Route: 048
  7. MIRALAX [Concomitant]
     Indication: CONSTIPATION
     Dosage: AS NEEDED
  8. AMBIEN [Concomitant]
     Indication: SLEEP DISORDER
     Dosage: 5 -10 MG PRN
     Route: 048
  9. OXYCONTIN [Concomitant]
     Indication: PAIN
     Route: 048

REACTIONS (7)
  - BLOOD PRESSURE IMMEASURABLE [None]
  - COLD SWEAT [None]
  - DIZZINESS [None]
  - HEART RATE DECREASED [None]
  - HYPOTONIA [None]
  - PALLOR [None]
  - PULSE PRESSURE DECREASED [None]
